FAERS Safety Report 8207293-3 (Version None)
Quarter: 2012Q1

REPORT INFORMATION
  Report Type: 
  Country: None (occurrence: None)
  Receive Date: 20120314
  Receipt Date: 20120305
  Transmission Date: 20120608
  Serious: No
  Sender: FDA-Public Use
  Company Number: JP-JNJFOC-20111205343

PATIENT
  Sex: Female
  Weight: 57 kg

DRUGS (12)
  1. PRAVASTATIN SODIUM [Concomitant]
     Route: 048
  2. FENTANYL-100 [Suspect]
     Indication: PAIN
     Route: 062
     Dates: start: 20100819, end: 20101031
  3. AMARYL [Concomitant]
     Route: 048
  4. CANDESARTAN CILEXETIL [Concomitant]
     Route: 048
  5. XYLOCAINE [Concomitant]
     Indication: PAIN
     Route: 065
  6. OMEPRAZOLE [Concomitant]
     Route: 048
  7. PROMAC (POLAPREZINC) [Concomitant]
     Route: 048
  8. ALOSENN [Concomitant]
     Route: 048
  9. AMLODIPINE [Concomitant]
     Route: 048
  10. ACTOS [Concomitant]
     Route: 048
  11. MORPHINE [Concomitant]
     Route: 065
     Dates: start: 20110817, end: 20110819
  12. LENDORMIN [Concomitant]
     Route: 048

REACTIONS (3)
  - NAUSEA [None]
  - CONSTIPATION [None]
  - DRUG PRESCRIBING ERROR [None]
